FAERS Safety Report 7883614-6 (Version None)
Quarter: 2011Q4

REPORT INFORMATION
  Report Type: 
  Country: None (occurrence: None)
  Receive Date: 20111102
  Receipt Date: 20111021
  Transmission Date: 20120403
  Serious: Yes (Other)
  Sender: FDA-Public Use
  Company Number: BR-BRISTOL-MYERS SQUIBB COMPANY-16196636

PATIENT
  Age: 57 Year
  Sex: Male
  Weight: 84 kg

DRUGS (11)
  1. GLIMEPIRIDE [Concomitant]
  2. ISORDIL [Concomitant]
  3. ASPIRIN [Concomitant]
  4. CLOPIDOGREL BISULFATE [Concomitant]
  5. LOSARTAN POTASSIUM [Concomitant]
  6. HYDROCHLOROTHIAZIDE [Concomitant]
  7. ROSUVASTATIN [Concomitant]
  8. ATENOLOL [Concomitant]
  9. METOPROLOL SUCCINATE [Concomitant]
  10. CAPOTEN [Suspect]
  11. METFORMIN HCL [Suspect]
     Dosage: PREVIOUS DOSE 1700 MG/DAY

REACTIONS (3)
  - BLOOD GLUCOSE INCREASED [None]
  - ISCHAEMIC STROKE [None]
  - ACUTE MYOCARDIAL INFARCTION [None]
